FAERS Safety Report 19965707 (Version 1)
Quarter: 2021Q4

REPORT INFORMATION
  Report Type: Spontaneous
  Country: US (occurrence: US)
  Receive Date: 20211018
  Receipt Date: 20211018
  Transmission Date: 20220303
  Serious: No
  Sender: FDA-Public Use
  Company Number: US-PFIZER INC-2021494874

PATIENT
  Age: 61 Year
  Sex: Female
  Weight: 55.78 kg

DRUGS (7)
  1. IBRANCE [Suspect]
     Active Substance: PALBOCICLIB
     Indication: Breast cancer
     Dosage: 75 MG, CYCLIC (1 TAB ORALLY/ DAILY; 21 OUT OF 28 DAYS)
     Route: 048
     Dates: start: 20210325
  2. MELATONIN [Concomitant]
     Active Substance: MELATONIN
     Dosage: 10 MG
  3. CALCIUM CARBONATE\VITAMIN D [Concomitant]
     Active Substance: CALCIUM CARBONATE\VITAMIN D
     Dosage: UNK [[CALCIUM:  600 MG, VITAMIN D3: 12.5 MG]]
  4. CELEBREX [Concomitant]
     Active Substance: CELECOXIB
     Dosage: 100 MG
  5. LETROZOLE [Concomitant]
     Active Substance: LETROZOLE
     Dosage: 2.5 MG
  6. OMEGA 3 + VITAMIN D [Concomitant]
     Dosage: [OMEGA-3: 150 MG, VITAMIN D3: 500 MG]
  7. CHOLECALCIFEROL [Concomitant]
     Active Substance: CHOLECALCIFEROL
     Dosage: 10 UG

REACTIONS (1)
  - White blood cell count decreased [Unknown]
